FAERS Safety Report 6119932-1 (Version None)
Quarter: 2009Q1

REPORT INFORMATION
  Report Type: 
  Country: None (occurrence: None)
  Receive Date: 20090316
  Receipt Date: 20090302
  Transmission Date: 20090719
  Serious: Yes (Other)
  Sender: FDA-Public Use
  Company Number: BR-ROCHE-620634

PATIENT
  Sex: Male

DRUGS (5)
  1. MYCOPHENOLATE MOFETIL [Suspect]
     Route: 065
  2. MYFORTIC [Suspect]
     Route: 065
  3. CYCLOSPORINE [Suspect]
     Route: 065
  4. THYMOGLOBULIN [Suspect]
     Route: 065
  5. TACROLIMUS [Suspect]
     Route: 065

REACTIONS (5)
  - CYTOMEGALOVIRUS INFECTION [None]
  - DIARRHOEA [None]
  - MALNUTRITION [None]
  - RENAL GRAFT LOSS [None]
  - TRANSPLANT REJECTION [None]
